FAERS Safety Report 11191983 (Version 1)
Quarter: 2015Q2

REPORT INFORMATION
  Report Type: Spontaneous
  Country: US (occurrence: US)
  Receive Date: 20150616
  Receipt Date: 20150616
  Transmission Date: 20150821
  Serious: Yes (Hospitalization, Other)
  Sender: FDA-Public Use
  Company Number: US-JNJFOC-20150604981

PATIENT
  Sex: Female

DRUGS (1)
  1. XARELTO [Suspect]
     Active Substance: RIVAROXABAN
     Indication: COAGULOPATHY
     Route: 048
     Dates: start: 2011

REACTIONS (12)
  - Dry skin [Unknown]
  - Increased tendency to bruise [Unknown]
  - Weight increased [Recovering/Resolving]
  - Thrombosis [Unknown]
  - Vision blurred [Unknown]
  - Pulmonary embolism [Unknown]
  - Alopecia [Unknown]
  - Wound haemorrhage [Unknown]
  - Panic attack [Unknown]
  - Depression [Unknown]
  - Scab [Not Recovered/Not Resolved]
  - Dermatillomania [Not Recovered/Not Resolved]

NARRATIVE: CASE EVENT DATE: 2011
